FAERS Safety Report 14977905 (Version 1)
Quarter: 2018Q2

REPORT INFORMATION
  Report Type: Spontaneous
  Country: US (occurrence: US)
  Receive Date: 20180515
  Receipt Date: 20180515
  Transmission Date: 20180711
  Serious: Yes (Hospitalization, Disabling, Other)
  Sender: FDA-Public Use
  Company Number: None

PATIENT
  Age: 48 Year
  Sex: Female
  Weight: 55.35 kg

DRUGS (2)
  1. MEXILETINE [Suspect]
     Active Substance: MEXILETINE
  2. ICD [Concomitant]

REACTIONS (7)
  - Ventricular tachycardia [None]
  - Heart transplant [None]
  - Cardiac failure [None]
  - Hepatic cirrhosis [None]
  - Cardiogenic shock [None]
  - Ischaemic hepatitis [None]
  - Gastric ulcer [None]

NARRATIVE: CASE EVENT DATE: 20161028
